FAERS Safety Report 9034414 (Version 1)
Quarter: 2013Q1

REPORT INFORMATION
  Report Type: Spontaneous
  Country: GB (occurrence: None)
  Receive Date: 20130111
  Receipt Date: 20130111
  Transmission Date: 20140127
  Serious: Yes (Death, Life-Threatening, Hospitalization)
  Sender: FDA-Public Use
  Company Number: 1549229

PATIENT
  Age: 75 Year
  Sex: Male

DRUGS (8)
  1. PENTOSTATIN [Suspect]
     Indication: NON-HODGKIN^S LYMPHOMA
     Route: 041
     Dates: start: 20071219, end: 20080718
  2. RITUXIMAB [Suspect]
     Indication: NON-HODGKIN^S LYMPHOMA
     Route: 041
     Dates: start: 20071219, end: 20080718
  3. CYCLOPHOSPHAMIDE [Suspect]
     Indication: NON-HODGKIN^S LYMPHOMA
     Route: 041
     Dates: start: 20071219, end: 20080718
  4. ASS [Concomitant]
  5. PLAVIX [Concomitant]
  6. PANTOZOL [Concomitant]
  7. ESIDRIX [Concomitant]
  8. METOPROLOL [Concomitant]

REACTIONS (5)
  - Pyrexia [None]
  - General physical health deterioration [None]
  - Lymph node tuberculosis [None]
  - Delirium [None]
  - Cachexia [None]
